FAERS Safety Report 13502760 (Version 3)
Quarter: 2017Q3

REPORT INFORMATION
  Report Type: Report from Study
  Country: KR (occurrence: KR)
  Receive Date: 20170502
  Receipt Date: 20170720
  Transmission Date: 20171127
  Serious: Yes (Hospitalization)
  Sender: FDA-Public Use
  Company Number: KR-ASTELLAS-2017US016097

PATIENT
  Age: 75 Year
  Sex: Male
  Weight: 65 kg

DRUGS (4)
  1. PROMAC                             /01312301/ [Concomitant]
     Active Substance: POLAPREZINC
     Indication: PROPHYLAXIS
     Dosage: 1 DF (DAILY DOSE), UNKNOWN FREQ.
     Route: 048
     Dates: start: 20161121, end: 20170123
  2. XATRAL [Concomitant]
     Active Substance: ALFUZOSIN
     Indication: BENIGN PROSTATIC HYPERPLASIA
     Dosage: 1 DF (DAILY DOSE), UNKNOWN FREQ.
     Route: 048
     Dates: start: 20161121, end: 20170123
  3. MIRABEGRON [Suspect]
     Active Substance: MIRABEGRON
     Indication: HYPERTONIC BLADDER
     Route: 048
     Dates: start: 20161121, end: 20170124
  4. MINIRIN [Concomitant]
     Active Substance: DESMOPRESSIN ACETATE
     Indication: NOCTURIA
     Dosage: 1 DF (DAILY DOSE), UNKNOWN FREQ.
     Route: 048
     Dates: start: 20161121, end: 20170123

REACTIONS (1)
  - Prostate ablation [Recovered/Resolved]

NARRATIVE: CASE EVENT DATE: 20170215
